FAERS Safety Report 4304461-8 (Version None)
Quarter: 2004Q1

REPORT INFORMATION
  Report Type: 
  Country: None (occurrence: None)
  Receive Date: 20040225
  Receipt Date: 20040225
  Transmission Date: 20041129
  Serious: Yes (Other)
  Sender: FDA-Public Use
  Company Number: None

PATIENT
  Weight: 68.9467 kg

DRUGS (1)
  1. DARVOCET-N 100 [Suspect]
     Indication: INTERVERTEBRAL DISC PROTRUSION
     Dosage: 1 TABLET PRN ORAL
     Route: 048
     Dates: start: 20031002, end: 20031002

REACTIONS (2)
  - HEADACHE [None]
  - HYPERSENSITIVITY [None]
